FAERS Safety Report 9015315 (Version 1)
Quarter: 2013Q1

REPORT INFORMATION
  Report Type: Spontaneous
  Country: US (occurrence: US)
  Receive Date: 20130116
  Receipt Date: 20130116
  Transmission Date: 20140127
  Serious: Yes (Hospitalization)
  Sender: FDA-Public Use
  Company Number: US-BAYER-2013-003429

PATIENT
  Age: 42 Year
  Sex: Female
  Weight: 58.65 kg

DRUGS (37)
  1. YAZ [Suspect]
  2. TOLTERODINE L-TARTRATE [Concomitant]
     Dosage: 4 MG, QD EVERYDAY
     Route: 048
  3. FELODIPIN [Concomitant]
     Dosage: 10 MG,DAILY
     Route: 048
  4. EPOETIN NOS [Concomitant]
  5. HYDROMORPHONE HYDROCHLORIDE [Concomitant]
     Indication: PROCEDURAL PAIN
     Dosage: 2 MG, QID
     Route: 048
  6. BISACODYL [Concomitant]
     Dosage: TAKE 2) 5 MG TABLET BID (TWICE DAILY
     Route: 048
  7. NEPHROCAPS [Concomitant]
     Dosage: DAILY
  8. DILAUDID [Concomitant]
     Dosage: 2 MG, QID AS NEEDED, DAILY
     Route: 048
  9. ZYRTEC [Concomitant]
     Dosage: 10 MG, [ONE] TABLET DAILY AS NEEDED
     Route: 048
  10. FLONASE [Concomitant]
     Dosage: 50 MCG - 1 TO 2 SPRAYS DAILY P.R.N. (AS NEEDED)
  11. PRILOSEC [Concomitant]
     Dosage: 20 MG, EVERY MORNING ON EMPTY STOMACH 30 MINUTES PRIOR TO MEALS
     Route: 048
  12. PHOSLO [Concomitant]
     Dosage: 667 MG, TID,[TWO] CAPSULES  [WITH] MEALS
     Route: 048
  13. PHOSLO [Concomitant]
     Dosage: WITH MEALS1334 MG, TID
     Route: 048
  14. VANCOMYCIN [Concomitant]
  15. CYCLOBENZAPRINE HYDROCHLORIDE [Concomitant]
     Dosage: 10 MG, UNK
     Route: 048
  16. SKELAXIN [Concomitant]
     Indication: MYALGIA
     Dosage: 800 MG, QID
     Route: 048
  17. TYLENOL [Concomitant]
     Dosage: 500 MG, TID IF NEEDED
  18. FLEXERIL [Concomitant]
     Indication: MYALGIA
     Dosage: 10 MG, Q.H.S. ( AT BEDTIME)
  19. HYDROXYZINE PAMOATE [Concomitant]
     Dosage: 25 MG, UNK
     Route: 048
  20. METHYLPREDNISOLONE [METHYLPREDNISOLONE] [Concomitant]
     Dosage: 4 MG, UNK
     Route: 048
  21. DIPHENOXYLATE/ATROPINE [ATROPINE SULFATE,DIPHENOXYLATE HYDROCHLORI [Concomitant]
     Dosage: 2.5 - .025/5 LIQUID
     Route: 048
  22. LOMOTIL [DIPHENOXYLATE HYDROCHLORIDE] [Concomitant]
  23. DULCOLAX [Concomitant]
     Dosage: 10 MG, BID
  24. DOXYCYCLINE HYCLATE [Concomitant]
     Dosage: 100 MG, UNK
     Route: 048
  25. BENZONATATE [Concomitant]
     Dosage: 100 MG, UNK
     Route: 048
  26. METOCLOPRAMIDE HCL [Concomitant]
     Dosage: 10 MG, UNK
     Route: 048
  27. CARVEDILOL [Concomitant]
     Dosage: 6.25 MG, BID
     Route: 048
  28. LEVOQUIN [Concomitant]
     Dosage: 250 MG, UNK
     Route: 048
  29. LISINOPRIL [Concomitant]
     Dosage: 20 MG, [ONE] TABLET DAILY
     Route: 048
  30. COREG [Concomitant]
     Dosage: 12.5 MG, BID [ONE] TABLET
     Route: 048
  31. B12 [Concomitant]
     Dosage: 1000 MCG/ML, SC OR IM EVERY MONTH
  32. PLENDIL [Concomitant]
     Dosage: 5 MG, DAILY
  33. EPOGEN [Concomitant]
  34. NARCO [Concomitant]
  35. MEDROL [Concomitant]
  36. ZEMPLAR [Concomitant]
  37. CENTRAZINE [Concomitant]

REACTIONS (1)
  - Pulmonary embolism [None]
